FAERS Safety Report 21818942 (Version 2)
Quarter: 2023Q2

REPORT INFORMATION
  Report Type: Spontaneous
  Country: US (occurrence: US)
  Receive Date: 20230104
  Receipt Date: 20230407
  Transmission Date: 20230721
  Serious: No
  Sender: FDA-Public Use
  Company Number: US-PFIZER INC-202101043407

PATIENT
  Age: 69 Year
  Sex: Female
  Weight: 87.528 kg

DRUGS (4)
  1. XELJANZ XR [Suspect]
     Active Substance: TOFACITINIB CITRATE
     Indication: Rheumatoid arthritis
     Dosage: 11 MG, 1X/DAY
     Route: 048
     Dates: start: 2018
  2. AZULFIDINE EN-TABS [Concomitant]
     Active Substance: SULFASALAZINE
     Dosage: UNK
  3. ETODOLAC [Concomitant]
     Active Substance: ETODOLAC
     Dosage: UNK
  4. LEVOMEFOLIC ACID\METHYLCOBALAMIN\TURMERIC [Concomitant]
     Active Substance: LEVOMEFOLIC ACID\METHYLCOBALAMIN\TURMERIC
     Dosage: UNK

REACTIONS (4)
  - Product dose omission in error [Unknown]
  - Condition aggravated [Unknown]
  - Drug ineffective [Unknown]
  - Product prescribing error [Unknown]
